FAERS Safety Report 5663478-1 (Version None)
Quarter: 2008Q1

REPORT INFORMATION
  Report Type: 
  Country: None (occurrence: None)
  Receive Date: 20080307
  Receipt Date: 20080225
  Transmission Date: 20080703
  Serious: Yes (Hospitalization, Other)
  Sender: FDA-Public Use
  Company Number: US022789

PATIENT
  Age: 28 Year
  Sex: Female

DRUGS (6)
  1. PROVIGIL [Suspect]
     Indication: FATIGUE
     Dosage: 100 MG BID ORAL
     Route: 048
     Dates: start: 20060101
  2. REBIF [Suspect]
     Indication: MULTIPLE SCLEROSIS
     Dosage: 44 UG THREE TIMES PER WEEK SUBCUTANEOUS
     Route: 058
     Dates: start: 20060426, end: 20070526
  3. NEURONTIN [Suspect]
     Indication: MULTIPLE SCLEROSIS
     Dosage: 600 MG TID
     Dates: start: 20060101
  4. DITROPAN [Suspect]
     Indication: INCONTINENCE
     Dosage: 5 MG QD
     Dates: start: 20060101
  5. CRESTOR [Suspect]
     Indication: BLOOD CHOLESTEROL INCREASED
     Dosage: 10 MG QD
     Dates: start: 20060101
  6. GLUCOVANCE [Suspect]
     Indication: DIABETES MELLITUS
     Dosage: 5 MG BID
     Dates: start: 20020101

REACTIONS (4)
  - CAESAREAN SECTION [None]
  - DRUG EXPOSURE DURING PREGNANCY [None]
  - PREMATURE LABOUR [None]
  - REFUSAL OF TREATMENT BY PATIENT [None]
